FAERS Safety Report 8350338-0 (Version None)
Quarter: 2012Q2

REPORT INFORMATION
  Report Type: 
  Country: None (occurrence: None)
  Receive Date: 20120510
  Receipt Date: 20120504
  Transmission Date: 20120825
  Serious: Yes (Other)
  Sender: FDA-Public Use
  Company Number: US-AMGEN-USASP2012023616

PATIENT
  Age: 83 Year
  Sex: Female
  Weight: 60.317 kg

DRUGS (3)
  1. NORVASC [Concomitant]
     Dosage: 7.5 MG, UNK
  2. PROLIA [Suspect]
     Indication: OSTEOPOROSIS POSTMENOPAUSAL
     Dosage: 60 MG, Q6MO
     Dates: start: 20110401, end: 20120405
  3. ATENOLOL [Concomitant]
     Dosage: 100 MG, QHS

REACTIONS (2)
  - HYPOTHYROIDISM [None]
  - UPPER RESPIRATORY TRACT INFECTION [None]
